FAERS Safety Report 6367495-8 (Version None)
Quarter: 2009Q3

REPORT INFORMATION
  Report Type: 
  Country: None (occurrence: None)
  Receive Date: 20090915
  Receipt Date: 20090825
  Transmission Date: 20100115
  Serious: Yes (Other)
  Sender: FDA-Public Use
  Company Number: 2009US004598

PATIENT
  Age: 42 Year
  Sex: Female

DRUGS (2)
  1. ALOXI [Suspect]
     Dosage: 0.25 MG, SINGLE, INTRAVENOUS; 0.25 MG, SINGLE, INTRAVENOUS
     Route: 042
     Dates: start: 20090803, end: 20090803
  2. ALOXI [Suspect]
     Dosage: 0.25 MG, SINGLE, INTRAVENOUS; 0.25 MG, SINGLE, INTRAVENOUS
     Route: 042
     Dates: start: 20090805, end: 20090805

REACTIONS (1)
  - BRADYCARDIA [None]
